FAERS Safety Report 6880897-6 (Version None)
Quarter: 2010Q3

REPORT INFORMATION
  Report Type: 
  Country: None (occurrence: None)
  Receive Date: 20100728
  Receipt Date: 20100721
  Transmission Date: 20110219
  Serious: Yes (Hospitalization, Other)
  Sender: FDA-Public Use
  Company Number: US-ABBOTT-10P-163-0659468-00

PATIENT
  Sex: Male

DRUGS (2)
  1. NORVIR [Suspect]
     Indication: ACQUIRED IMMUNODEFICIENCY SYNDROME
     Route: 048
  2. ZOCOR [Suspect]
     Indication: PRODUCT USED FOR UNKNOWN INDICATION
     Dosage: TOOK DURING HOSPITALIZATION.
     Dates: start: 20100326

REACTIONS (2)
  - BLOOD CREATININE INCREASED [None]
  - DYSPNOEA [None]
